FAERS Safety Report 7274454-X (Version None)
Quarter: 2011Q1

REPORT INFORMATION
  Report Type: 
  Country: None (occurrence: None)
  Receive Date: 20110204
  Receipt Date: 20110131
  Transmission Date: 20110831
  Serious: No
  Sender: FDA-Public Use
  Company Number: US-PFIZER INC-2010179476

PATIENT
  Sex: Male

DRUGS (2)
  1. COUMADIN [Concomitant]
  2. TIKOSYN [Suspect]
     Dosage: UNK

REACTIONS (3)
  - HEART RATE IRREGULAR [None]
  - ARTHRALGIA [None]
  - COUGH [None]
